FAERS Safety Report 13158701 (Version 2)
Quarter: 2017Q3

REPORT INFORMATION
  Report Type: Report from Study
  Country: US (occurrence: US)
  Receive Date: 20170127
  Receipt Date: 20170801
  Transmission Date: 20171127
  Serious: Yes (Hospitalization)
  Sender: FDA-Public Use
  Company Number: US-SAOL THERAPEUTICS-2017SAO00153

PATIENT
  Age: 44 Year
  Sex: Male

DRUGS (2)
  1. BUPIVACAINE. [Suspect]
     Active Substance: BUPIVACAINE
     Dosage: 4.238 MG, \DAY
     Route: 037
     Dates: start: 20160810
  2. BACLOFEN. [Suspect]
     Active Substance: BACLOFEN
     Dosage: 1271.3 ?G, \DAY
     Route: 037
     Dates: start: 20160118

REACTIONS (2)
  - Gun shot wound [Recovered/Resolved]
  - Impaired healing [Recovered/Resolved]

NARRATIVE: CASE EVENT DATE: 20160315
